FAERS Safety Report 12778941 (Version 1)
Quarter: 2016Q3

REPORT INFORMATION
  Report Type: Spontaneous
  Country: US (occurrence: US)
  Receive Date: 20160926
  Receipt Date: 20160926
  Transmission Date: 20161109
  Serious: No
  Sender: FDA-Public Use
  Company Number: US-JAZZ-2016-US-010732

PATIENT
  Sex: Female

DRUGS (29)
  1. SPIRONOLACTONE. [Concomitant]
     Active Substance: SPIRONOLACTONE
  2. FLONASE [Concomitant]
     Active Substance: FLUTICASONE PROPIONATE
  3. KLONOPIN [Concomitant]
     Active Substance: CLONAZEPAM
  4. MELATONIN [Concomitant]
     Active Substance: MELATONIN
  5. MODAFINIL. [Concomitant]
     Active Substance: MODAFINIL
  6. SINGULAIR [Concomitant]
     Active Substance: MONTELUKAST SODIUM
  7. LITHOBID [Concomitant]
     Active Substance: LITHIUM CARBONATE
  8. XYREM [Suspect]
     Active Substance: SODIUM OXYBATE
     Dosage: DOSE ADJUSTMENTS
     Route: 048
     Dates: start: 201501, end: 201504
  9. MUCINEX [Concomitant]
     Active Substance: GUAIFENESIN
  10. EVOXAC [Concomitant]
     Active Substance: CEVIMELINE HYDROCHLORIDE
  11. PROTONIX [Concomitant]
     Active Substance: PANTOPRAZOLE SODIUM
  12. XYREM [Suspect]
     Active Substance: SODIUM OXYBATE
     Dosage: 4.5 G, BID
     Route: 048
     Dates: start: 201504
  13. VENTOLIN HFA [Concomitant]
     Active Substance: ALBUTEROL SULFATE
  14. TYLENOL [Concomitant]
     Active Substance: ACETAMINOPHEN
  15. MIRALAX [Concomitant]
     Active Substance: POLYETHYLENE GLYCOL 3350
  16. BOTOX [Concomitant]
     Active Substance: ONABOTULINUMTOXINA
  17. GAS-X [Concomitant]
     Active Substance: DIMETHICONE
  18. MULTIVITAMINS [Concomitant]
     Active Substance: VITAMINS
  19. NASONEX [Concomitant]
     Active Substance: MOMETASONE FUROATE
  20. XYZAL [Concomitant]
     Active Substance: LEVOCETIRIZINE DIHYDROCHLORIDE
  21. RESTASIS [Concomitant]
     Active Substance: CYCLOSPORINE
  22. CARAFATE [Concomitant]
     Active Substance: SUCRALFATE
  23. PARNATE [Concomitant]
     Active Substance: TRANYLCYPROMINE SULFATE
  24. XYREM [Suspect]
     Active Substance: SODIUM OXYBATE
     Indication: SOMNOLENCE
     Dosage: 2.25 G, BID
     Route: 048
     Dates: start: 201412, end: 201501
  25. TAZORAC [Concomitant]
     Active Substance: TAZAROTENE
  26. LEVOTHYROXINE SODIUM. [Concomitant]
     Active Substance: LEVOTHYROXINE SODIUM
  27. RANITIDINE. [Concomitant]
     Active Substance: RANITIDINE
  28. MIRENA [Concomitant]
     Active Substance: LEVONORGESTREL
  29. ACIDOPHILUS [Concomitant]
     Active Substance: LACTOBACILLUS ACIDOPHILUS

REACTIONS (1)
  - Gastrointestinal bacterial overgrowth [Unknown]
